FAERS Safety Report 7324040-8 (Version None)
Quarter: 2011Q1

REPORT INFORMATION
  Report Type: 
  Country: None (occurrence: None)
  Receive Date: 20110217
  Receipt Date: 20100218
  Transmission Date: 20110831
  Serious: No
  Sender: FDA-Public Use
  Company Number: USA/USA/10/0009271

PATIENT
  Age: 65 Year
  Sex: Female
  Weight: 69.8539 kg

DRUGS (1)
  1. ONDANSETRON [Suspect]
     Indication: NAUSEA
     Dosage: 4 MG, PER ORAL
     Route: 048
     Dates: start: 20100217

REACTIONS (3)
  - HYPOTENSION [None]
  - ABDOMINAL PAIN UPPER [None]
  - HEART RATE DECREASED [None]
